FAERS Safety Report 5652803-3 (Version None)
Quarter: 2008Q1

REPORT INFORMATION
  Report Type: 
  Country: None (occurrence: None)
  Receive Date: 20080131
  Receipt Date: 20071003
  Transmission Date: 20080703
  Serious: No
  Sender: FDA-Public Use
  Company Number: US200710001125

PATIENT
  Sex: Female

DRUGS (3)
  1. BYETTA [Suspect]
  2. LANOXIN [Concomitant]
  3. CIPRO [Concomitant]

REACTIONS (1)
  - BLOOD GLUCOSE DECREASED [None]
